FAERS Safety Report 5383380-2 (Version None)
Quarter: 2007Q3

REPORT INFORMATION
  Report Type: 
  Country: None (occurrence: None)
  Receive Date: 20070710
  Receipt Date: 20070705
  Transmission Date: 20080115
  Serious: Yes (Other)
  Sender: FDA-Public Use
  Company Number: US-ASTRAZENECA-2007UW15814

PATIENT
  Age: 77 Year
  Sex: Female

DRUGS (3)
  1. FASLODEX [Suspect]
     Indication: BREAST CANCER METASTATIC
     Route: 030
     Dates: start: 20040101
  2. FASLODEX [Suspect]
     Route: 030
     Dates: start: 20040101
  3. ANTIHYPERTENSIVE [Concomitant]

REACTIONS (2)
  - HAEMOGLOBIN DECREASED [None]
  - VITAMIN D DEFICIENCY [None]
